FAERS Safety Report 6532259-9 (Version None)
Quarter: 2010Q1

REPORT INFORMATION
  Report Type: 
  Country: None (occurrence: None)
  Receive Date: 20100108
  Receipt Date: 20091230
  Transmission Date: 20100710
  Serious: Yes (Hospitalization)
  Sender: FDA-Public Use
  Company Number: PHHY2009GB60095

PATIENT
  Sex: Male

DRUGS (1)
  1. CLOZARIL [Suspect]
     Indication: SCHIZOPHRENIA
     Dosage: UNK
     Dates: start: 20011218

REACTIONS (4)
  - GASTROINTESTINAL HAEMORRHAGE [None]
  - GASTROINTESTINAL ULCER [None]
  - HAEMOGLOBIN DECREASED [None]
  - THYROID MASS [None]
